FAERS Safety Report 9465584 (Version 1)
Quarter: 2013Q3

REPORT INFORMATION
  Report Type: Spontaneous
  Country: BR (occurrence: BR)
  Receive Date: 20130820
  Receipt Date: 20130820
  Transmission Date: 20140515
  Serious: Yes (Hospitalization)
  Sender: FDA-Public Use
  Company Number: BR-JNJFOC-20130803884

PATIENT
  Sex: Female

DRUGS (1)
  1. TYLEX [Suspect]
     Indication: PRODUCT USED FOR UNKNOWN INDICATION
     Dosage: TOOK TWO TABLETS.
     Route: 065

REACTIONS (2)
  - Abdominal pain upper [Unknown]
  - Vomiting [Unknown]
